FAERS Safety Report 9054729 (Version 3)
Quarter: 2013Q1

REPORT INFORMATION
  Report Type: Spontaneous
  Country: US (occurrence: US)
  Receive Date: 20130208
  Receipt Date: 20130325
  Transmission Date: 20140127
  Serious: Yes (Life-Threatening, Hospitalization, Disabling, Other)
  Sender: FDA-Public Use
  Company Number: PHEH2013US002931

PATIENT
  Age: 48 None
  Sex: Female

DRUGS (1)
  1. GILENYA [Suspect]
     Indication: RELAPSING-REMITTING MULTIPLE SCLEROSIS
     Dosage: 0.5 MG, QD
     Route: 048
     Dates: start: 201009, end: 20130119

REACTIONS (8)
  - Cerebral haemorrhage [Recovering/Resolving]
  - Balance disorder [Unknown]
  - Dizziness [Unknown]
  - Coordination abnormal [Unknown]
  - Disorientation [Unknown]
  - Gait disturbance [Unknown]
  - Dysarthria [Unknown]
  - Fall [Unknown]
